FAERS Safety Report 24319965 (Version 5)
Quarter: 2025Q1

REPORT INFORMATION
  Report Type: Spontaneous
  Country: US (occurrence: US)
  Receive Date: 20240914
  Receipt Date: 20250129
  Transmission Date: 20250409
  Serious: No
  Sender: SANOFI AVENTIS
  Company Number: US-SA-2024SA264645

PATIENT
  Age: 80 Year
  Sex: Female

DRUGS (6)
  1. DUPIXENT [Suspect]
     Active Substance: DUPILUMAB
     Indication: Dermatitis atopic
     Dosage: 300 MG, QOW
     Route: 058
     Dates: start: 202408, end: 2024
  2. DUPIXENT [Suspect]
     Active Substance: DUPILUMAB
     Indication: Eczema
     Route: 058
     Dates: start: 20240913, end: 20240913
  3. DUPIXENT [Suspect]
     Active Substance: DUPILUMAB
     Dosage: 300 MG, QOW
     Route: 058
     Dates: start: 20240926
  4. TACROLIMUS [Concomitant]
     Active Substance: TACROLIMUS
  5. KETOCONAZOLE [Concomitant]
     Active Substance: KETOCONAZOLE
  6. CLOBETASOL [Concomitant]
     Active Substance: CLOBETASOL

REACTIONS (10)
  - Nasal congestion [Unknown]
  - Upper-airway cough syndrome [Unknown]
  - Lip dry [Unknown]
  - Throat irritation [Unknown]
  - Back pain [Unknown]
  - Injection site pain [Recovered/Resolved]
  - Dermatitis atopic [Recovered/Resolved]
  - Inappropriate schedule of product administration [Unknown]
  - Therapeutic response shortened [Unknown]
  - Pruritus [Not Recovered/Not Resolved]

NARRATIVE: CASE EVENT DATE: 20240101
